FAERS Safety Report 5372030-7 (Version None)
Quarter: 2007Q2

REPORT INFORMATION
  Report Type: 
  Country: None (occurrence: None)
  Receive Date: 20070625
  Receipt Date: 20070608
  Transmission Date: 20071010
  Serious: Yes (Life-Threatening, Hospitalization)
  Sender: FDA-Public Use
  Company Number: DSA_30102_2007

PATIENT
  Age: 67 Year
  Sex: Female

DRUGS (4)
  1. LORAZEPAM [Suspect]
     Dosage: (1 MG QD ORAL)
     Route: 048
     Dates: start: 20040101, end: 20070404
  2. NEXIUM [Suspect]
     Indication: DYSPEPSIA
     Dosage: (40 MG QD ORAL)
     Route: 048
     Dates: start: 20070221, end: 20070404
  3. DOGMATIL                   (DOGMATIL) 50 MG (NOT SPECIFIED) [Suspect]
     Indication: DIZZINESS
     Dosage: (50 MG PRN ORAL)
     Route: 048
     Dates: start: 20040101, end: 20040404
  4. PANTECTA [Concomitant]

REACTIONS (4)
  - HEPATITIS [None]
  - OEDEMA [None]
  - STEVENS-JOHNSON SYNDROME [None]
  - THROMBOCYTOPENIA [None]
